FAERS Safety Report 23310835 (Version 1)
Quarter: 2023Q4

REPORT INFORMATION
  Report Type: Spontaneous
  Country: US (occurrence: US)
  Receive Date: 20231218
  Receipt Date: 20231218
  Transmission Date: 20240109
  Serious: No
  Sender: FDA-Public Use
  Company Number: US-ALKEM LABORATORIES LIMITED-US-ALKEM-2023-11052

PATIENT

DRUGS (7)
  1. MYCOPHENOLATE MOFETIL [Suspect]
     Active Substance: MYCOPHENOLATE MOFETIL
     Indication: Hypophysitis
     Dosage: UNK
     Route: 065
  2. MYCOPHENOLATE MOFETIL [Suspect]
     Active Substance: MYCOPHENOLATE MOFETIL
     Indication: Systemic lupus erythematosus
  3. CERTOLIZUMAB [Concomitant]
     Active Substance: CERTOLIZUMAB
     Indication: Hypophysitis
     Dosage: UNK
     Route: 065
  4. HYDROXYCHLOROQUINE [Concomitant]
     Active Substance: HYDROXYCHLOROQUINE
     Indication: Hypophysitis
     Dosage: UNK
     Route: 065
  5. HYDROXYCHLOROQUINE [Concomitant]
     Active Substance: HYDROXYCHLOROQUINE
     Indication: Systemic lupus erythematosus
  6. RITUXIMAB [Concomitant]
     Active Substance: RITUXIMAB
     Indication: Hypophysitis
     Dosage: UNK
     Route: 065
  7. RITUXIMAB [Concomitant]
     Active Substance: RITUXIMAB
     Indication: Systemic lupus erythematosus

REACTIONS (1)
  - Diarrhoea [Unknown]
